FAERS Safety Report 9409047 (Version 1)
Quarter: 2013Q3

REPORT INFORMATION
  Report Type: Spontaneous
  Country: US (occurrence: US)
  Receive Date: 20130719
  Receipt Date: 20130719
  Transmission Date: 20140515
  Serious: Yes (Hospitalization)
  Sender: FDA-Public Use
  Company Number: US-AMGEN-USASP2013049475

PATIENT
  Age: 100 Year
  Sex: Female

DRUGS (1)
  1. SENSIPAR [Suspect]
     Indication: HYPERPARATHYROIDISM PRIMARY
     Dosage: 30 MG, QD, CHRONICALLY

REACTIONS (3)
  - Mental disorder [Unknown]
  - Hypercalcaemia [Unknown]
  - Wrong technique in drug usage process [Unknown]
